FAERS Safety Report 8575959 (Version 3)
Quarter: 2013Q2

REPORT INFORMATION
  Report Type: Spontaneous
  Country: US (occurrence: US)
  Receive Date: 20120523
  Receipt Date: 20130610
  Transmission Date: 20140414
  Serious: Yes (Other)
  Sender: FDA-Public Use
  Company Number: US-PFIZER INC-2012121232

PATIENT
  Age: 86 Year
  Sex: Male
  Weight: 84 kg

DRUGS (1)
  1. CELEBREX [Suspect]
     Indication: ARTHRITIS
     Dosage: 200 MG, 1 QD
     Route: 048

REACTIONS (2)
  - Cerebrovascular accident [Unknown]
  - Blindness [Unknown]
